FAERS Safety Report 14503065 (Version 1)
Quarter: 2018Q1

REPORT INFORMATION
  Report Type: Spontaneous
  Country: US (occurrence: US)
  Receive Date: 20180208
  Receipt Date: 20180208
  Transmission Date: 20180509
  Serious: No
  Sender: FDA-Public Use
  Company Number: US-PFIZER INC-2018052856

PATIENT
  Age: 81 Year
  Sex: Female
  Weight: 74.84 kg

DRUGS (1)
  1. PREMARIN [Suspect]
     Active Substance: ESTROGENS, CONJUGATED
     Indication: HYSTERECTOMY
     Dosage: 0.625MG TABLET-1 TABLET EVERY DAY BY MOUTH IN THE MORNING
     Route: 048

REACTIONS (10)
  - Sinus headache [Recovered/Resolved]
  - Influenza [Recovering/Resolving]
  - Eating disorder [Unknown]
  - Diarrhoea [Recovered/Resolved]
  - Oropharyngeal pain [Recovered/Resolved]
  - Nausea [Unknown]
  - Cough [Not Recovered/Not Resolved]
  - Rhinorrhoea [Unknown]
  - Gastroenteritis viral [Recovering/Resolving]
  - Abdominal discomfort [Unknown]

NARRATIVE: CASE EVENT DATE: 201801
